FAERS Safety Report 20870500 (Version 1)
Quarter: 2022Q2

REPORT INFORMATION
  Report Type: Report from Study
  Country: RO (occurrence: RO)
  Receive Date: 20220525
  Receipt Date: 20220525
  Transmission Date: 20220721
  Serious: Yes (Hospitalization)
  Sender: FDA-Public Use
  Company Number: RO-ABBVIE-22K-135-4407370-00

PATIENT
  Age: 85 Year
  Sex: Female

DRUGS (4)
  1. GLECAPREVIR\PIBRENTASVIR [Suspect]
     Active Substance: GLECAPREVIR\PIBRENTASVIR
     Indication: Chronic hepatitis C
     Dosage: 300 MG/120 MG
     Route: 048
     Dates: start: 20220412, end: 20220413
  2. DIETARY SUPPLEMENT\HERBALS\MILK THISTLE [Concomitant]
     Active Substance: DIETARY SUPPLEMENT\HERBALS\MILK THISTLE
     Indication: Liver disorder
     Route: 048
     Dates: start: 20220428
  3. ESSENTIALE FORTE [Concomitant]
     Indication: Liver disorder
     Route: 048
     Dates: start: 20220428
  4. AZARGA [Concomitant]
     Active Substance: BRINZOLAMIDE\TIMOLOL MALEATE
     Indication: Eye disorder
     Dosage: 1 DROP IN BOTH EYES

REACTIONS (3)
  - Asymptomatic COVID-19 [Recovered/Resolved]
  - Decreased appetite [Recovering/Resolving]
  - Nausea [Recovering/Resolving]

NARRATIVE: CASE EVENT DATE: 20220412
